FAERS Safety Report 20835960 (Version 4)
Quarter: 2022Q3

REPORT INFORMATION
  Report Type: Spontaneous
  Country: US (occurrence: US)
  Receive Date: 20220516
  Receipt Date: 20220824
  Transmission Date: 20221027
  Serious: Yes (Other)
  Sender: FDA-Public Use
  Company Number: US-BRISTOL-MYERS SQUIBB COMPANY-2022-036099

PATIENT
  Age: 71 Year
  Sex: Female

DRUGS (2)
  1. REVLIMID [Suspect]
     Active Substance: LENALIDOMIDE
     Indication: Product used for unknown indication
     Dosage: 21/28 DAYS
     Route: 048
     Dates: start: 20210330
  2. REVLIMID [Suspect]
     Active Substance: LENALIDOMIDE
     Dosage: TAKE 1 CAPSULE BY MOUTH DAILY ON  DAYS 1-21, REPEAT EVERY 28 DAYS.
     Route: 048
     Dates: start: 20210330

REACTIONS (2)
  - Urinary tract infection [Recovered/Resolved]
  - Cataract [Recovered/Resolved]
